FAERS Safety Report 10748936 (Version 1)
Quarter: 2015Q1

REPORT INFORMATION
  Report Type: Spontaneous
  Country: US (occurrence: None)
  Receive Date: 20150128
  Receipt Date: 20150128
  Transmission Date: 20150721
  Serious: Yes (Disabling)
  Sender: FDA-Public Use
  Company Number: None

PATIENT
  Age: 48 Year
  Sex: Female
  Weight: 62.6 kg

DRUGS (1)
  1. CLINDAMYCIN [Suspect]
     Active Substance: CLINDAMYCIN\CLINDAMYCIN PHOSPHATE
     Indication: POST PROCEDURAL INFECTION
     Dosage: 1 PILL, FOUR TIMES DAILY, TAKEN BY MOUTH
     Route: 048
     Dates: start: 20150114, end: 20150123

REACTIONS (1)
  - Faecal incontinence [None]

NARRATIVE: CASE EVENT DATE: 20150127
